FAERS Safety Report 25658906 (Version 2)
Quarter: 2025Q3

REPORT INFORMATION
  Report Type: Spontaneous
  Country: US (occurrence: US)
  Receive Date: 20250808
  Receipt Date: 20250917
  Transmission Date: 20251020
  Serious: No
  Sender: SANOFI AVENTIS
  Company Number: US-SA-2025SA232298

PATIENT
  Sex: Female

DRUGS (6)
  1. NEXVIAZYME [Suspect]
     Active Substance: AVALGLUCOSIDASE ALFA-NGPT
     Indication: Glycogen storage disease type II
     Dosage: 1800 MG, QOW
     Route: 042
     Dates: start: 202209
  2. STERILE WATER [Concomitant]
     Active Substance: WATER
  3. DIPHENHYDRAMINE [Concomitant]
     Active Substance: DIPHENHYDRAMINE
  4. BACTERIOSTATIC WATER [Concomitant]
     Active Substance: WATER
  5. DEXTROSE [Concomitant]
     Active Substance: DEXTROSE MONOHYDRATE
  6. DEXTROSE [Concomitant]
     Active Substance: DEXTROSE MONOHYDRATE

REACTIONS (1)
  - Flushing [Unknown]
